FAERS Safety Report 14021970 (Version 1)
Quarter: 2017Q3

REPORT INFORMATION
  Report Type: Spontaneous
  Country: US (occurrence: US)
  Receive Date: 20170928
  Receipt Date: 20170928
  Transmission Date: 20171128
  Serious: Yes (Life-Threatening, Disabling)
  Sender: FDA-Public Use
  Company Number: None

PATIENT
  Age: 21 Year
  Sex: Male
  Weight: 76.5 kg

DRUGS (3)
  1. MULTIVITAMIN [Concomitant]
     Active Substance: VITAMINS
  2. AMPHETAMINE/DEXTRO ER [Concomitant]
  3. DULOXETINE (GENERIC CYMBALTA) [Suspect]
     Active Substance: DULOXETINE
     Indication: MAJOR DEPRESSION
     Dosage: ?          QUANTITY:1 CAPSULE(S);?
     Route: 048

REACTIONS (6)
  - Therapy cessation [None]
  - Suicidal ideation [None]
  - Paraesthesia [None]
  - Vertigo [None]
  - Depressed mood [None]
  - Unevaluable event [None]

NARRATIVE: CASE EVENT DATE: 20170914
